FAERS Safety Report 23029854 (Version 1)
Quarter: 2023Q4

REPORT INFORMATION
  Report Type: Spontaneous
  Country: US (occurrence: US)
  Receive Date: 20231004
  Receipt Date: 20231004
  Transmission Date: 20240110
  Serious: No
  Sender: FDA-Public Use
  Company Number: US-JNJFOC-20230958088

PATIENT
  Sex: Female

DRUGS (4)
  1. SIMPONI ARIA [Suspect]
     Active Substance: GOLIMUMAB
     Indication: Product used for unknown indication
     Route: 041
  2. SIMPONI ARIA [Suspect]
     Active Substance: GOLIMUMAB
     Route: 041
  3. SIMPONI ARIA [Suspect]
     Active Substance: GOLIMUMAB
     Route: 041
  4. SIMPONI ARIA [Suspect]
     Active Substance: GOLIMUMAB
     Route: 041

REACTIONS (2)
  - Product dose omission issue [Unknown]
  - Rash [Unknown]

NARRATIVE: CASE EVENT DATE: 20230925
